FAERS Safety Report 25177143 (Version 1)
Quarter: 2025Q2

REPORT INFORMATION
  Report Type: Other
  Country: IT (occurrence: IT)
  Receive Date: 20250409
  Receipt Date: 20250409
  Transmission Date: 20250717
  Serious: Yes (Hospitalization)
  Sender: ANI
  Company Number: IT-ANIPHARMA-022343

PATIENT
  Age: 56 Year
  Sex: Female

DRUGS (3)
  1. INDAPAMIDE [Suspect]
     Active Substance: INDAPAMIDE
     Indication: Hypertension
  2. PERINDOPRIL [Concomitant]
     Active Substance: PERINDOPRIL
     Indication: Hypertension
  3. AMLODIPINE [Concomitant]
     Active Substance: AMLODIPINE BESYLATE
     Indication: Hypertension

REACTIONS (6)
  - Aphasia [Unknown]
  - Hyponatraemia [Recovering/Resolving]
  - Apraxia [Unknown]
  - Gait disturbance [Unknown]
  - Dysarthria [Unknown]
  - Dysphagia [Unknown]
